APPROVED DRUG PRODUCT: ADVAIR DISKUS 100/50
Active Ingredient: FLUTICASONE PROPIONATE; SALMETEROL XINAFOATE
Strength: 0.1MG/INH;EQ 0.05MG BASE/INH
Dosage Form/Route: POWDER;INHALATION
Application: N021077 | Product #001 | TE Code: AB
Applicant: GLAXO GROUP LTD ENGLAND DBA GLAXOSMITHKLINE
Approved: Aug 24, 2000 | RLD: Yes | RS: Yes | Type: RX